FAERS Safety Report 24029931 (Version 1)
Quarter: 2024Q2

REPORT INFORMATION
  Report Type: Spontaneous
  Country: US (occurrence: None)
  Receive Date: 20240628
  Receipt Date: 20240628
  Transmission Date: 20240716
  Serious: Yes (Other)
  Sender: FDA-Public Use
  Company Number: None

PATIENT
  Sex: 0

DRUGS (1)
  1. NALTREXONE [Suspect]
     Active Substance: NALTREXONE
     Indication: Alcoholism
     Dosage: OTHER QUANTITY : 1 TABLET(S);?

REACTIONS (8)
  - Dizziness [None]
  - Malaise [None]
  - Migraine [None]
  - Nausea [None]
  - Abdominal discomfort [None]
  - Nasopharyngitis [None]
  - Tooth disorder [None]
  - Anosmia [None]

NARRATIVE: CASE EVENT DATE: 20240622
